FAERS Safety Report 6103229-X (Version None)
Quarter: 2009Q1

REPORT INFORMATION
  Report Type: 
  Country: None (occurrence: None)
  Receive Date: 20090305
  Receipt Date: 20090119
  Transmission Date: 20090719
  Serious: Yes (Life-Threatening, Hospitalization)
  Sender: FDA-Public Use
  Company Number: AU-PFIZER INC-2008156553

PATIENT

DRUGS (7)
  1. CYTOTEC [Suspect]
     Dosage: 200 UG, UNK
  2. FENTANYL-100 [Suspect]
     Dosage: 100 UG, UNK
     Route: 042
  3. HYPNOVEL [Suspect]
     Dosage: 2.5 MG, UNK
     Route: 042
  4. INDOCIN [Suspect]
     Dosage: 100 MG, UNK
     Route: 054
  5. MAXOLON [Suspect]
     Dosage: 10 MG, UNK
     Route: 042
  6. PROPOFOL [Suspect]
     Dosage: 10 MG, UNK
     Route: 042
  7. XYLOCAIN-ADRENALIN [Suspect]
     Route: 042

REACTIONS (8)
  - ABDOMINAL PAIN [None]
  - ANXIETY [None]
  - BLOOD PRESSURE DECREASED [None]
  - DEPRESSED LEVEL OF CONSCIOUSNESS [None]
  - DIARRHOEA [None]
  - HYPERHIDROSIS [None]
  - PRURITUS [None]
  - TACHYCARDIA [None]
